FAERS Safety Report 20603308 (Version 4)
Quarter: 2022Q2

REPORT INFORMATION
  Report Type: Spontaneous
  Country: US (occurrence: US)
  Receive Date: 20220316
  Receipt Date: 20220622
  Transmission Date: 20220721
  Serious: Yes (Hospitalization, Other)
  Sender: FDA-Public Use
  Company Number: US-PFIZER INC-202200385341

PATIENT
  Age: 64 Year
  Sex: Female
  Weight: 80.7 kg

DRUGS (36)
  1. DOXYCYCLINE HYCLATE [Suspect]
     Active Substance: DOXYCYCLINE HYCLATE
     Indication: Pneumonia
     Dosage: UNK
  2. METHOTREXATE SODIUM [Suspect]
     Active Substance: METHOTREXATE SODIUM
     Indication: Psoriatic arthropathy
     Dosage: 20 MG, WEEKLY
     Dates: end: 2022
  3. METHOTREXATE SODIUM [Suspect]
     Active Substance: METHOTREXATE SODIUM
     Dosage: 2.5 MG, WEEKLY
     Dates: end: 2022
  4. FIRDAPSE [Suspect]
     Active Substance: AMIFAMPRIDINE PHOSPHATE
     Indication: Myasthenic syndrome
     Dosage: 5 MG, 1X/DAY
     Route: 048
     Dates: start: 20211022, end: 20211024
  5. FIRDAPSE [Suspect]
     Active Substance: AMIFAMPRIDINE PHOSPHATE
     Dosage: 10 MG, 1X/DAY
     Route: 048
     Dates: start: 20211025
  6. FIRDAPSE [Suspect]
     Active Substance: AMIFAMPRIDINE PHOSPHATE
     Dosage: 30 MG, 3X/DAY
     Route: 048
     Dates: start: 2021, end: 2021
  7. FIRDAPSE [Suspect]
     Active Substance: AMIFAMPRIDINE PHOSPHATE
     Dosage: 10 MG, 2X/DAY (2X/DAY IN THE MORNING AND AT NOON)
     Route: 048
     Dates: start: 2021, end: 2021
  8. FIRDAPSE [Suspect]
     Active Substance: AMIFAMPRIDINE PHOSPHATE
     Dosage: 5 MG, 1X/DAY (1X/DAY AT NIGHT)
     Route: 048
     Dates: start: 2021, end: 2021
  9. FIRDAPSE [Suspect]
     Active Substance: AMIFAMPRIDINE PHOSPHATE
     Dosage: 10 MG, 3X/DAY
     Route: 048
     Dates: start: 2021, end: 2021
  10. FIRDAPSE [Suspect]
     Active Substance: AMIFAMPRIDINE PHOSPHATE
     Dosage: 25 MG, 1X/DAY
     Route: 048
     Dates: start: 2021
  11. FIRDAPSE [Suspect]
     Active Substance: AMIFAMPRIDINE PHOSPHATE
     Dosage: 10 MG, 2X/DAY (AT BREAKFAST AND LUNCH)
     Route: 048
     Dates: end: 202202
  12. FIRDAPSE [Suspect]
     Active Substance: AMIFAMPRIDINE PHOSPHATE
     Dosage: 10 MG, 3X/DAY (AT MEALS)
     Route: 048
     Dates: end: 202202
  13. FIRDAPSE [Suspect]
     Active Substance: AMIFAMPRIDINE PHOSPHATE
     Dosage: 10 MG, 3X/DAY
     Route: 048
     Dates: start: 20220318, end: 202203
  14. FIRDAPSE [Suspect]
     Active Substance: AMIFAMPRIDINE PHOSPHATE
     Dosage: 10 MG, 2X/DAY
     Route: 048
     Dates: start: 202203, end: 2022
  15. FIRDAPSE [Suspect]
     Active Substance: AMIFAMPRIDINE PHOSPHATE
     Dosage: 10 MG, 2X/DAY
     Route: 048
     Dates: start: 2022
  16. IBUPROFEN [Suspect]
     Active Substance: IBUPROFEN
     Indication: Viral infection
     Dosage: UNK
     Dates: end: 2022
  17. IBUPROFEN [Suspect]
     Active Substance: IBUPROFEN
     Indication: Pain
     Dosage: 200 MG, 2X/DAY
  18. LEUCOVORIN [Suspect]
     Active Substance: LEUCOVORIN
     Dosage: 5 MG, WEEKLY
     Dates: end: 2022
  19. MESTINON [Suspect]
     Active Substance: PYRIDOSTIGMINE BROMIDE
     Indication: Myasthenic syndrome
     Dosage: 60 MG, 4X/DAY
  20. METFORMIN [Concomitant]
     Active Substance: METFORMIN HYDROCHLORIDE
     Indication: Diabetes mellitus
     Dosage: 500 MG, DAILY
  21. CHOLECALCIFEROL [Concomitant]
     Active Substance: CHOLECALCIFEROL
     Indication: Vitamin D deficiency
     Dosage: UNK
  22. CLOBETASOL [Concomitant]
     Active Substance: CLOBETASOL
     Indication: Psoriasis
     Dosage: UNK
     Route: 061
  23. PLAVIX [Concomitant]
     Active Substance: CLOPIDOGREL BISULFATE
     Indication: Stent placement
     Dosage: 75 MG, DAILY
  24. INSPRA [Concomitant]
     Active Substance: EPLERENONE
     Indication: Paralysis
     Dosage: 50 MG, 2X/DAY
  25. ZETIA [Concomitant]
     Active Substance: EZETIMIBE
     Indication: Blood cholesterol increased
     Dosage: 10 MG, DAILY
  26. SYNTHROID [Concomitant]
     Active Substance: LEVOTHYROXINE SODIUM
     Indication: Basedow^s disease
     Dosage: 112 UG, 1X/DAY
  27. POTASSIUM BICARBONATE [Concomitant]
     Active Substance: POTASSIUM BICARBONATE
     Indication: Paralysis
     Dosage: 25 MEQ, 2X/DAY
  28. KLOR-CON [Concomitant]
     Active Substance: POTASSIUM CHLORIDE
     Indication: Paralysis
     Dosage: 40 MEQ, 5X/DAY
  29. KLOR-CON [Concomitant]
     Active Substance: POTASSIUM CHLORIDE
     Dosage: 20 MEQ (5X/ DAY)
  30. ASPIRIN [Concomitant]
     Active Substance: ASPIRIN
     Indication: Cardiac disorder
     Dosage: 81 MG, DAILY
  31. ASPIRIN [Concomitant]
     Active Substance: ASPIRIN
     Indication: Stent placement
  32. ALPRAZOLAM [Concomitant]
     Active Substance: ALPRAZOLAM
     Indication: Stress
     Dosage: 0.25 MG, AS NEEDED
  33. POTASSIUM CITRATE CITRIC ACID [Concomitant]
     Indication: Paralysis
     Dosage: CRYSTALS 2X/DAY
  34. DICLOFENAC POTASSIUM [Concomitant]
     Active Substance: DICLOFENAC POTASSIUM
     Dosage: UNK
     Route: 061
  35. ACETAMINOPHEN\HYDROCODONE [Concomitant]
     Active Substance: ACETAMINOPHEN\HYDROCODONE
     Dosage: 0.03 MG
  36. EPLERENONE [Concomitant]
     Active Substance: EPLERENONE
     Dosage: 50 MG, 2X/DAY

REACTIONS (25)
  - Blood potassium decreased [Recovered/Resolved]
  - Pneumonia [Recovered/Resolved]
  - Fall [Recovered/Resolved]
  - Rib fracture [Recovered/Resolved]
  - Postmenopausal haemorrhage [Recovered/Resolved]
  - African trypanosomiasis [Unknown]
  - Aspartate aminotransferase increased [Not Recovered/Not Resolved]
  - Alanine aminotransferase increased [Not Recovered/Not Resolved]
  - Musculoskeletal chest pain [Recovered/Resolved]
  - Inflammation [Recovered/Resolved]
  - Viral infection [Recovered/Resolved]
  - Pain in extremity [Recovered/Resolved]
  - Muscle spasms [Recovered/Resolved]
  - Gastric disorder [Unknown]
  - Nausea [Not Recovered/Not Resolved]
  - Cough [Unknown]
  - Feeling abnormal [Unknown]
  - Ageusia [Unknown]
  - Anosmia [Unknown]
  - Asthenia [Unknown]
  - Blood calcium increased [Unknown]
  - Blood parathyroid hormone increased [Unknown]
  - Blood phosphorus increased [Unknown]
  - C-reactive protein increased [Unknown]
  - Red blood cell sedimentation rate increased [Unknown]

NARRATIVE: CASE EVENT DATE: 20210101
